FAERS Safety Report 12438282 (Version 1)
Quarter: 2016Q2

REPORT INFORMATION
  Report Type: Spontaneous
  Country: US (occurrence: US)
  Receive Date: 20160606
  Receipt Date: 20160606
  Transmission Date: 20160815
  Serious: No
  Sender: FDA-Public Use
  Company Number: US-MYLANLABS-2016M1011371

PATIENT

DRUGS (3)
  1. TAMOXIFEN [Concomitant]
     Active Substance: TAMOXIFEN
     Dosage: UNK
     Dates: start: 20160107, end: 20160224
  2. CAPECITABINE TABLETS, USP [Suspect]
     Active Substance: CAPECITABINE
     Indication: BREAST CANCER
     Dosage: 2000 MG, 5XW(ON WEEKDAYS)
     Route: 048
     Dates: start: 20160120, end: 20160224
  3. CAPECITABINE TABLETS, USP [Suspect]
     Active Substance: CAPECITABINE
     Dosage: 1000 MG, QD
     Route: 048
     Dates: start: 20160311

REACTIONS (4)
  - Skin exfoliation [Not Recovered/Not Resolved]
  - Lymphoedema [Not Recovered/Not Resolved]
  - Skin fissures [Recovered/Resolved]
  - Paraesthesia [Not Recovered/Not Resolved]

NARRATIVE: CASE EVENT DATE: 20160218
